FAERS Safety Report 25110336 (Version 1)
Quarter: 2025Q1

REPORT INFORMATION
  Report Type: Spontaneous
  Country: US (occurrence: US)
  Receive Date: 20250324
  Receipt Date: 20250324
  Transmission Date: 20250408
  Serious: Yes (Hospitalization, Other)
  Sender: NOVO NORDISK
  Company Number: US-NOVOPROD-1390431

PATIENT
  Age: 75 Year

DRUGS (1)
  1. XULTOPHY 100/3.6 [Suspect]
     Active Substance: INSULIN DEGLUDEC\LIRAGLUTIDE
     Indication: Type 2 diabetes mellitus
     Dosage: 36 IU, QD
     Route: 058
     Dates: start: 2023

REACTIONS (3)
  - Fall [Unknown]
  - Ankle fracture [Recovering/Resolving]
  - Lower limb fracture [Recovering/Resolving]

NARRATIVE: CASE EVENT DATE: 20250117
